FAERS Safety Report 17844070 (Version 4)
Quarter: 2020Q3

REPORT INFORMATION
  Report Type: Report from Study
  Country: GT (occurrence: GT)
  Receive Date: 20200601
  Receipt Date: 20200715
  Transmission Date: 20201103
  Serious: Yes (Death, Hospitalization)
  Sender: FDA-Public Use
  Company Number: GT-BIOGEN-2020BI00879741

PATIENT
  Age: 52 Year
  Sex: Female
  Weight: 54 kg

DRUGS (5)
  1. TYSABRI [Suspect]
     Active Substance: NATALIZUMAB
     Indication: RELAPSING MULTIPLE SCLEROSIS
     Route: 042
     Dates: start: 20181230, end: 202005
  2. PROPRANOLOL [Concomitant]
     Active Substance: PROPRANOLOL HYDROCHLORIDE
     Indication: THYROID DISORDER
     Route: 065
  3. EUTEBIOL [Concomitant]
     Indication: PAIN
     Route: 065
  4. AMAZOL [Concomitant]
     Indication: THYROID DISORDER
     Route: 065
  5. TYSABRI [Suspect]
     Active Substance: NATALIZUMAB
     Route: 042
     Dates: start: 20190406

REACTIONS (2)
  - Blindness [Not Recovered/Not Resolved]
  - Multiple sclerosis relapse [Fatal]

NARRATIVE: CASE EVENT DATE: 202004
